FAERS Safety Report 7767100-X (Version None)
Quarter: 2011Q3

REPORT INFORMATION
  Report Type: 
  Country: None (occurrence: None)
  Receive Date: 20110922
  Receipt Date: 20110630
  Transmission Date: 20111222
  Serious: No
  Sender: FDA-Public Use
  Company Number: US-ASTRAZENECA-2011SE39440

PATIENT
  Age: 28 Year
  Sex: Male
  Weight: 88.5 kg

DRUGS (3)
  1. KLONOPIN [Concomitant]
  2. RISPERDAL [Concomitant]
  3. SEROQUEL XR [Suspect]
     Indication: BIPOLAR DISORDER
     Route: 048

REACTIONS (3)
  - CIRCADIAN RHYTHM SLEEP DISORDER [None]
  - INSOMNIA [None]
  - SOMNOLENCE [None]
